FAERS Safety Report 6159964-0 (Version None)
Quarter: 2009Q2

REPORT INFORMATION
  Report Type: 
  Country: None (occurrence: None)
  Receive Date: 20090416
  Receipt Date: 20090402
  Transmission Date: 20091009
  Serious: Yes (Hospitalization)
  Sender: FDA-Public Use
  Company Number: 2009SP000891

PATIENT
  Age: 53 Year
  Sex: Male

DRUGS (17)
  1. XOPENEX [Suspect]
     Indication: CHRONIC OBSTRUCTIVE PULMONARY DISEASE
     Dosage: 1.25 MG/3ML; PRN; INHALATION
     Route: 055
  2. PREDNISONE [Concomitant]
  3. ALTACE [Concomitant]
  4. LORAZEPAM [Concomitant]
  5. PAXIL [Concomitant]
  6. SPIRIVA [Concomitant]
  7. CARDIZEM [Concomitant]
  8. FORTEO [Concomitant]
  9. TRAVATAN [Concomitant]
  10. ALPHAGAN [Concomitant]
  11. ASPIRIN [Concomitant]
  12. LASIX [Concomitant]
  13. ASCORBIC ACID [Concomitant]
  14. VITAMIN D [Concomitant]
  15. LEVAQUIN [Concomitant]
  16. NIASPAN [Concomitant]
  17. SIMVASTATIN [Concomitant]

REACTIONS (7)
  - CHEST PAIN [None]
  - CHRONIC OBSTRUCTIVE PULMONARY DISEASE [None]
  - CONDITION AGGRAVATED [None]
  - GASTROOESOPHAGEAL REFLUX DISEASE [None]
  - OESOPHAGEAL CANDIDIASIS [None]
  - OESOPHAGITIS [None]
  - OROPHARYNGEAL PAIN [None]
